FAERS Safety Report 7748784-9 (Version None)
Quarter: 2011Q3

REPORT INFORMATION
  Report Type: 
  Country: None (occurrence: None)
  Receive Date: 20110914
  Receipt Date: 20110901
  Transmission Date: 20111222
  Serious: Yes (Death, Hospitalization, Other)
  Sender: FDA-Public Use
  Company Number: DE-PAR PHARMACEUTICAL, INC-PAR_03295_2009

PATIENT
  Sex: Male
  Weight: 73 kg

DRUGS (10)
  1. IBUPROFEN [Suspect]
     Indication: PAIN
     Dosage: 1800 MG, DAILY
     Route: 065
     Dates: start: 20091207
  2. ENOXAPARIN SODIUM [Concomitant]
     Indication: KNEE ARTHROPLASTY
  3. ENOXAPARIN SODIUM [Concomitant]
     Indication: THROMBOSIS PROPHYLAXIS
     Dosage: FREQUENCY UNKNOWN
     Route: 065
     Dates: start: 20091209, end: 20091229
  4. XARELTO [Suspect]
     Indication: THROMBOSIS PROPHYLAXIS
     Dosage: UNK UNK, UNKNOWN
     Route: 048
     Dates: start: 20091207, end: 20091209
  5. EMBOLEX [Concomitant]
     Indication: KNEE ARTHROPLASTY
  6. FLOTRIN [Concomitant]
     Indication: BENIGN PROSTATIC HYPERPLASIA
     Dosage: FREQUENCY UNKNOWN
     Dates: start: 20070101
  7. EMBOLEX [Concomitant]
     Indication: THROMBOSIS PROPHYLAXIS
     Dosage: 3000 UT, UNKNOWN
     Route: 065
     Dates: start: 20091209, end: 20100102
  8. XARELTO [Suspect]
     Indication: KNEE ARTHROPLASTY
     Dosage: DF
     Route: 048
     Dates: start: 20091207, end: 20091209
  9. PANTOPRAZOLE [Concomitant]
     Indication: PROPHYLAXIS AGAINST GASTROINTESTINAL ULCER
     Dosage: FREQUENCY UNKNOWN
     Route: 065
     Dates: start: 20091207
  10. ZINACEF [Concomitant]
     Indication: INFECTION PROPHYLAXIS
     Dosage: FREQUENCY UNKNOWN
     Dates: start: 20091207, end: 20091207

REACTIONS (3)
  - DRUG INTERACTION [None]
  - HAEMARTHROSIS [None]
  - POST PROCEDURAL HAEMORRHAGE [None]
